FAERS Safety Report 11794573 (Version 1)
Quarter: 2015Q4

REPORT INFORMATION
  Report Type: Spontaneous
  Country: US (occurrence: None)
  Receive Date: 20151201
  Receipt Date: 20151201
  Transmission Date: 20160305
  Serious: Yes (Hospitalization, Disabling)
  Sender: FDA-Public Use
  Company Number: US-ALSI-201500304

PATIENT
  Age: 54 Year
  Sex: Female

DRUGS (6)
  1. NITROUS OXIDE. [Suspect]
     Active Substance: NITROUS OXIDE
     Indication: GENERAL ANAESTHESIA
     Dosage: 50 % RESPIRATORY
     Route: 055
  2. MORPHINE [Concomitant]
     Active Substance: MORPHINE
  3. TOLAZAMIDE. [Concomitant]
     Active Substance: TOLAZAMIDE
  4. VECURONIUM [Concomitant]
     Active Substance: VECURONIUM BROMIDE
  5. FENTANYL. [Concomitant]
     Active Substance: FENTANYL
  6. FORANE [Concomitant]
     Active Substance: ISOFLURANE

REACTIONS (3)
  - Pernicious anaemia [None]
  - Vitamin B12 deficiency [None]
  - Subacute combined cord degeneration [None]
